FAERS Safety Report 7869351-2 (Version None)
Quarter: 2011Q4

REPORT INFORMATION
  Report Type: 
  Country: None (occurrence: None)
  Receive Date: 20111028
  Receipt Date: 20101230
  Transmission Date: 20120403
  Serious: No
  Sender: FDA-Public Use
  Company Number: US-AMGEN-USASP2010012388

PATIENT
  Age: 59 Year
  Sex: Female
  Weight: 70.295 kg

DRUGS (8)
  1. METHOTREXATE [Concomitant]
     Dosage: 2.5 MG, UNK
  2. SINGULAIR [Concomitant]
     Dosage: 10 MG, UNK
  3. CALCIUM D                          /00944201/ [Concomitant]
  4. CLARITIN                           /00413701/ [Concomitant]
     Dosage: 5 MG, UNK
  5. PRILOSEC [Concomitant]
     Dosage: 20 MG, UNK
  6. ENBREL [Suspect]
     Indication: PRODUCT USED FOR UNKNOWN INDICATION
     Dosage: 50 MG, QWK
  7. MULTIVITAMIN                       /00097801/ [Concomitant]
  8. HYDROXYZINE HCL [Concomitant]
     Dosage: 10 MG, UNK

REACTIONS (2)
  - DYSGEUSIA [None]
  - SINUSITIS [None]
